FAERS Safety Report 9733698 (Version 2)
Quarter: 2014Q1

REPORT INFORMATION
  Report Type: Report from Study
  Country: DE (occurrence: DE)
  Receive Date: 20131205
  Receipt Date: 20140211
  Transmission Date: 20141002
  Serious: Yes (Hospitalization)
  Sender: FDA-Public Use
  Company Number: DE-UCBSA-104891

PATIENT
  Sex: Female

DRUGS (5)
  1. CERTOLIZUMAB PEGOL [Suspect]
     Indication: RHEUMATOID ARTHRITIS
     Route: 058
     Dates: start: 201004, end: 201012
  2. RTX [Concomitant]
     Dosage: 500MG
     Dates: start: 20110428
  3. RTX [Concomitant]
     Dosage: 500MG
     Dates: start: 20120224
  4. PREDNISOLON [Concomitant]
     Dosage: 5MG
  5. ACEMETACIN [Concomitant]

REACTIONS (1)
  - Adenocarcinoma of colon [Recovered/Resolved]
